FAERS Safety Report 19095569 (Version 3)
Quarter: 2025Q3

REPORT INFORMATION
  Report Type: Report from Study
  Country: EU (occurrence: EU)
  Receive Date: 20210406
  Receipt Date: 20250829
  Transmission Date: 20251021
  Serious: Yes (Other)
  Sender: TAKEDA
  Company Number: EU-INCYTE CORPORATION-2021IN002790

PATIENT
  Age: 62 Year
  Sex: Female

DRUGS (3)
  1. PONATINIB [Suspect]
     Active Substance: PONATINIB
     Indication: Product used for unknown indication
  2. PONATINIB [Suspect]
     Active Substance: PONATINIB
  3. PONATINIB [Suspect]
     Active Substance: PONATINIB

REACTIONS (9)
  - Neutropenic sepsis [Recovered/Resolved]
  - Palpitations [Recovered/Resolved]
  - Rash [Recovered/Resolved]
  - Dry skin [Not Recovered/Not Resolved]
  - Nausea [Recovered/Resolved]
  - Abdominal pain [Recovered/Resolved]
  - Diarrhoea [Recovered/Resolved]
  - Fatigue [Recovered/Resolved]
  - Oral pain [Recovered/Resolved]

NARRATIVE: CASE EVENT DATE: 20200401
